APPROVED DRUG PRODUCT: EXTRANEAL
Active Ingredient: ICODEXTRIN
Strength: 7.5GM/100ML
Dosage Form/Route: SOLUTION;INTRAPERITONEAL
Application: N021321 | Product #001
Applicant: VANTIVE US HEALTHCARE LLC
Approved: Dec 20, 2002 | RLD: Yes | RS: Yes | Type: RX